FAERS Safety Report 7131255-0 (Version None)
Quarter: 2010Q4

REPORT INFORMATION
  Report Type: 
  Country: None (occurrence: None)
  Receive Date: 20101201
  Receipt Date: 20101129
  Transmission Date: 20110411
  Serious: Yes (Other)
  Sender: FDA-Public Use
  Company Number: MA-ROXANE LABORATORIES, INC.-2010-RO-01559RO

PATIENT
  Age: 39 Year
  Sex: Female

DRUGS (2)
  1. CYCLOPHOSPHAMIDE [Suspect]
     Indication: SCLERODERMA
  2. AZATHIOPRINE [Suspect]
     Indication: SCLERODERMA
     Dates: start: 20070401

REACTIONS (1)
  - ACARODERMATITIS [None]
